FAERS Safety Report 17130440 (Version 3)
Quarter: 2020Q1

REPORT INFORMATION
  Report Type: Spontaneous
  Country: US (occurrence: US)
  Receive Date: 20191209
  Receipt Date: 20200108
  Transmission Date: 20200409
  Serious: No
  Sender: FDA-Public Use
  Company Number: US-ACTELION-A-NJ2019-198887

PATIENT

DRUGS (2)
  1. OPSUMIT [Suspect]
     Active Substance: MACITENTAN
     Indication: PRODUCT USED FOR UNKNOWN INDICATION
     Dosage: UNK
     Route: 048
     Dates: start: 20191122
  2. SILDENAFIL. [Concomitant]
     Active Substance: SILDENAFIL

REACTIONS (5)
  - Oxygen saturation abnormal [Unknown]
  - Fluid retention [Unknown]
  - Feeling abnormal [Unknown]
  - Dyspnoea [Unknown]
  - Adverse event [Unknown]
